FAERS Safety Report 9139857 (Version 2)
Quarter: 2013Q2

REPORT INFORMATION
  Report Type: Spontaneous
  Country: US (occurrence: US)
  Receive Date: 20130305
  Receipt Date: 20130408
  Transmission Date: 20140414
  Serious: Yes (Other)
  Sender: FDA-Public Use
  Company Number: US-PFIZER INC-2013074301

PATIENT
  Age: 57 Year
  Sex: Female
  Weight: 104.76 kg

DRUGS (8)
  1. CELEBREX [Suspect]
     Indication: ARTHROPATHY
     Dosage: 200 MG, 1X/DAY
     Route: 048
     Dates: start: 2012, end: 20130225
  2. LIPITOR [Suspect]
     Indication: BLOOD CHOLESTEROL INCREASED
     Dosage: 80 MG, 1X/DAY
     Route: 048
     Dates: start: 201210, end: 20130225
  3. MICARDIS HCT [Concomitant]
     Indication: HYPERTENSION
     Dosage: 80/12.5 MG
  4. LOPRESSOR [Concomitant]
     Indication: HYPERTENSION
     Dosage: 60 MG, 1X/DAY
  5. POTASSIUM CHLORIDE [Concomitant]
     Dosage: 20 MG, 1X/DAY
  6. ALLOPURINOL [Concomitant]
     Indication: GOUT
     Dosage: 300 MG, 1X/DAY
  7. LASIX [Concomitant]
     Indication: OEDEMA PERIPHERAL
     Dosage: 40 MG, 1X/DAY
  8. ASPIRIN [Concomitant]
     Dosage: 325 MG, UNK

REACTIONS (6)
  - Renal impairment [Unknown]
  - Alanine aminotransferase increased [Unknown]
  - Aspartate aminotransferase increased [Unknown]
  - Blood alkaline phosphatase increased [Unknown]
  - Blood bilirubin increased [Unknown]
  - Pruritus generalised [Unknown]
